FAERS Safety Report 5455469-0 (Version None)
Quarter: 2007Q3

REPORT INFORMATION
  Report Type: 
  Country: None (occurrence: None)
  Receive Date: 20070914
  Receipt Date: 20070906
  Transmission Date: 20080115
  Serious: Yes (Hospitalization, Disabling, Other)
  Sender: FDA-Public Use
  Company Number: 163-21880-07080929

PATIENT
  Age: 81 Year
  Sex: Male

DRUGS (3)
  1. REVLIMID [Suspect]
     Indication: MULTIPLE MYELOMA
     Dosage: 25 MG, DAILY FOR 21 DAYS, ORAL
     Route: 048
     Dates: start: 20070701
  2. DEXAMETHASONE TAB [Concomitant]
  3. VELCADE [Concomitant]

REACTIONS (3)
  - ABASIA [None]
  - GENERAL PHYSICAL HEALTH DETERIORATION [None]
  - PAIN [None]
